FAERS Safety Report 12350441 (Version 1)
Quarter: 2016Q2

REPORT INFORMATION
  Report Type: Spontaneous
  Country: US (occurrence: None)
  Receive Date: 20160509
  Receipt Date: 20160509
  Transmission Date: 20160815
  Serious: Yes (Hospitalization, Other)
  Sender: FDA-Public Use
  Company Number: None

PATIENT
  Age: 62 Year
  Sex: Female
  Weight: 47.63 kg

DRUGS (1)
  1. XGEVA [Suspect]
     Active Substance: DENOSUMAB
     Indication: OSTEOPOROSIS
     Dosage: GIVEN INTO/UNDER THE SKIN
     Route: 058
     Dates: start: 20160413

REACTIONS (17)
  - Back pain [None]
  - Fatigue [None]
  - Feeding disorder [None]
  - Pain in extremity [None]
  - Activities of daily living impaired [None]
  - Flatulence [None]
  - Nausea [None]
  - Gait disturbance [None]
  - Impaired work ability [None]
  - Arthralgia [None]
  - Abdominal pain [None]
  - Flank pain [None]
  - Joint range of motion decreased [None]
  - Dysstasia [None]
  - Weight decreased [None]
  - Asthenia [None]
  - Hypersomnia [None]

NARRATIVE: CASE EVENT DATE: 20160415
